FAERS Safety Report 7741568-7 (Version None)
Quarter: 2011Q3

REPORT INFORMATION
  Report Type: 
  Country: None (occurrence: None)
  Receive Date: 20110909
  Receipt Date: 20110831
  Transmission Date: 20111222
  Serious: Yes (Hospitalization, Other)
  Sender: FDA-Public Use
  Company Number: US-ASTRAZENECA-2011SE52288

PATIENT
  Age: 82 Year
  Sex: Male
  Weight: 81.6 kg

DRUGS (6)
  1. NEXIUM [Suspect]
     Indication: GASTROOESOPHAGEAL REFLUX DISEASE
     Route: 048
     Dates: start: 20060101
  2. TOPROL-XL [Concomitant]
  3. METFORMIN [Concomitant]
  4. BENZZEPRIL [Concomitant]
  5. GEMIEROCIL [Concomitant]
  6. LAXAPRO [Concomitant]

REACTIONS (3)
  - HYPERSENSITIVITY [None]
  - LEIOMYOSARCOMA [None]
  - RASH [None]
